FAERS Safety Report 5182666-4 (Version None)
Quarter: 2006Q4

REPORT INFORMATION
  Report Type: 
  Country: None (occurrence: None)
  Receive Date: 20061220
  Receipt Date: 20061207
  Transmission Date: 20070319
  Serious: Yes (Other)
  Sender: FDA-Public Use
  Company Number: PHEH2006US15026

PATIENT
  Sex: Female

DRUGS (5)
  1. FORADIL [Suspect]
     Dates: start: 20061001
  2. ASMANEX TWISTHALER [Suspect]
     Dates: start: 20061001
  3. KEPPRA [Concomitant]
     Dates: start: 20060401
  4. CALCIUM [Concomitant]
  5. VITAMIN D [Concomitant]

REACTIONS (2)
  - CONVULSION [None]
  - INSOMNIA [None]
